FAERS Safety Report 19451174 (Version 1)
Quarter: 2021Q2

REPORT INFORMATION
  Report Type: Spontaneous
  Country: US (occurrence: US)
  Receive Date: 20210622
  Receipt Date: 20210622
  Transmission Date: 20210717
  Serious: Yes (Hospitalization)
  Sender: FDA-Public Use
  Company Number: None

PATIENT
  Age: 75 Year
  Sex: Female
  Weight: 118.3 kg

DRUGS (15)
  1. ANASTROZOLE. [Concomitant]
     Active Substance: ANASTROZOLE
  2. CARTIA XT [Concomitant]
     Active Substance: DILTIAZEM HYDROCHLORIDE
  3. FULVESTRANT. [Concomitant]
     Active Substance: FULVESTRANT
  4. PROCHLORPERAZINE MALEATE. [Concomitant]
     Active Substance: PROCHLORPERAZINE MALEATE
  5. CAPECITABINE. [Suspect]
     Active Substance: CAPECITABINE
     Indication: BREAST CANCER
     Route: 048
     Dates: start: 20210519, end: 20210612
  6. ATORVASTATIN CALCIUM. [Concomitant]
     Active Substance: ATORVASTATIN CALCIUM
  7. FUROSEMIDE. [Concomitant]
     Active Substance: FUROSEMIDE
  8. IBRANCE [Concomitant]
     Active Substance: PALBOCICLIB
  9. IRON [Concomitant]
     Active Substance: IRON
  10. MELATONIN ER [Concomitant]
  11. LANTUS [Concomitant]
     Active Substance: INSULIN GLARGINE
  12. TRAMADOL HCL [Concomitant]
     Active Substance: TRAMADOL HYDROCHLORIDE
  13. COLACE [Concomitant]
     Active Substance: DOCUSATE SODIUM
  14. MULTIVITAMIN ADULT [Concomitant]
  15. VITAMIN D (CHOLECALCIFEROL) [Concomitant]
     Active Substance: CHOLECALCIFEROL

REACTIONS (3)
  - Diarrhoea [None]
  - Therapy interrupted [None]
  - Intestinal obstruction [None]

NARRATIVE: CASE EVENT DATE: 20210612
